FAERS Safety Report 10253826 (Version 1)
Quarter: 2014Q2

REPORT INFORMATION
  Report Type: Spontaneous
  Country: US (occurrence: US)
  Receive Date: 20140623
  Receipt Date: 20140623
  Transmission Date: 20141212
  Serious: No
  Sender: FDA-Public Use
  Company Number: US-ZOGENIX, INC.-2011ZX000560

PATIENT
  Sex: Female
  Weight: 65.83 kg

DRUGS (5)
  1. SUMAVEL DOSEPRO [Suspect]
     Indication: MIGRAINE
  2. RIZATRIPTAN [Concomitant]
     Indication: MIGRAINE
  3. ESOMEPRAZOLE [Concomitant]
     Indication: PRODUCT USED FOR UNKNOWN INDICATION
  4. NEBIVOLOL [Concomitant]
     Indication: HYPERTENSION
     Route: 048
  5. MONTELUKAST [Concomitant]
     Indication: BRONCHOSPASM
     Route: 048

REACTIONS (1)
  - Injection site pain [Recovered/Resolved]
